FAERS Safety Report 13594142 (Version 1)
Quarter: 2017Q2

REPORT INFORMATION
  Report Type: Report from Study
  Country: None (occurrence: KR)
  Receive Date: 20170530
  Receipt Date: 20170530
  Transmission Date: 20170830
  Serious: Yes (Other)
  Sender: FDA-Public Use
  Company Number: KR-EISAI MEDICAL RESEARCH-EC-2017-027950

PATIENT
  Age: 55 Year
  Sex: Male
  Weight: 72 kg

DRUGS (7)
  1. FYCOMPA [Suspect]
     Active Substance: PERAMPANEL
     Indication: SEIZURE
     Route: 048
     Dates: start: 20170125, end: 20170426
  2. KEPPRA [Concomitant]
     Active Substance: LEVETIRACETAM
  3. TOPAMAX [Concomitant]
     Active Substance: TOPIRAMATE
  4. SABRIL [Concomitant]
     Active Substance: VIGABATRIN
  5. CARMAZEPINE CR [Concomitant]
  6. PAXIL [Concomitant]
     Active Substance: PAROXETINE HYDROCHLORIDE
  7. TRITTICO [Concomitant]
     Active Substance: TRAZODONE HYDROCHLORIDE

REACTIONS (1)
  - Anaemia [Unknown]

NARRATIVE: CASE EVENT DATE: 20170426
